FAERS Safety Report 5999476-8 (Version None)
Quarter: 2008Q4

REPORT INFORMATION
  Report Type: 
  Country: None (occurrence: None)
  Receive Date: 20081211
  Receipt Date: 20081205
  Transmission Date: 20090506
  Serious: Yes (Disabling)
  Sender: FDA-Public Use
  Company Number: GXKR2008DE10522

PATIENT
  Sex: Male
  Weight: 72 kg

DRUGS (8)
  1. SULFASALAZINE [Suspect]
     Indication: POLYARTHRITIS
     Dosage: 1000 MG DAILY, ORAL
     Route: 048
     Dates: start: 20071201, end: 20080901
  2. RAMIPRIL [Concomitant]
  3. TAMSULOSIN HCL [Concomitant]
  4. AGGRENOX [Concomitant]
  5. OMEPRAZOLE [Concomitant]
  6. CALCIUM SANDOZ (CALCIUM, COLECALCIFEROL) [Concomitant]
  7. METHOTREXATE SODIUM [Concomitant]
  8. ALENDRONATE SODIUM [Concomitant]

REACTIONS (2)
  - AGEUSIA [None]
  - ANOSMIA [None]
